FAERS Safety Report 10652263 (Version 1)
Quarter: 2014Q4

REPORT INFORMATION
  Report Type: Spontaneous
  Country: CN (occurrence: CN)
  Receive Date: 20141215
  Receipt Date: 20141215
  Transmission Date: 20150529
  Serious: Yes (Other)
  Sender: FDA-Public Use
  Company Number: CN-009507513-1412CHN003556

PATIENT
  Sex: Female

DRUGS (2)
  1. LIDOCAINE HYDROCHLORIDE. [Concomitant]
     Active Substance: LIDOCAINE HYDROCHLORIDE
     Dosage: UNK
  2. DIPROSPAN [Suspect]
     Active Substance: BETAMETHASONE DIPROPIONATE\BETAMETHASONE SODIUM PHOSPHATE
     Indication: HAND FRACTURE
     Dosage: UNK

REACTIONS (5)
  - Discomfort [Unknown]
  - Vision blurred [Unknown]
  - Night sweats [Unknown]
  - Osteonecrosis [Unknown]
  - Muscle atrophy [Unknown]
